FAERS Safety Report 20803579 (Version 6)
Quarter: 2022Q4

REPORT INFORMATION
  Report Type: Spontaneous
  Country: ES (occurrence: ES)
  Receive Date: 20220509
  Receipt Date: 20221017
  Transmission Date: 20230112
  Serious: Yes (Other)
  Sender: FDA-Public Use
  Company Number: ES-OTSUKA-2022_026023

PATIENT
  Age: 57 Year
  Sex: Male

DRUGS (2)
  1. TOLVAPTAN [Suspect]
     Active Substance: TOLVAPTAN
     Indication: Congenital cystic kidney disease
     Dosage: 90 MG, QD
     Route: 065
     Dates: start: 20190517
  2. TOLVAPTAN [Suspect]
     Active Substance: TOLVAPTAN
     Dosage: 30 MG, QD
     Route: 065
     Dates: start: 20190517

REACTIONS (5)
  - Hepatic cancer [Not Recovered/Not Resolved]
  - Hepatectomy [Recovered/Resolved]
  - Cholecystectomy [Recovered/Resolved]
  - Renal impairment [Recovered/Resolved]
  - Transaminases increased [Recovered/Resolved]

NARRATIVE: CASE EVENT DATE: 20210101
